FAERS Safety Report 10238201 (Version 1)
Quarter: 2014Q2

REPORT INFORMATION
  Report Type: Spontaneous
  Country: CH (occurrence: CH)
  Receive Date: 20140616
  Receipt Date: 20140616
  Transmission Date: 20141212
  Serious: Yes (Other)
  Sender: FDA-Public Use
  Company Number: CH-JNJFOC-20140605898

PATIENT
  Age: 2 Year
  Sex: Female

DRUGS (1)
  1. RISPERIDONE [Suspect]
     Indication: ACCIDENTAL EXPOSURE TO PRODUCT BY CHILD
     Route: 048

REACTIONS (4)
  - Toxicity to various agents [Unknown]
  - Accidental exposure to product by child [Unknown]
  - Extrapyramidal disorder [Unknown]
  - Accidental overdose [Unknown]
